FAERS Safety Report 5340037-1 (Version None)
Quarter: 2007Q2

REPORT INFORMATION
  Report Type: 
  Country: None (occurrence: None)
  Receive Date: 20070529
  Receipt Date: 20070515
  Transmission Date: 20071010
  Serious: Yes (Hospitalization)
  Sender: FDA-Public Use
  Company Number: TCI2007A02363

PATIENT
  Age: 51 Year
  Sex: Male

DRUGS (5)
  1. ACTOS [Suspect]
     Indication: DIABETES MELLITUS
     Dosage: 30 MG (30 MG, 1 D) PER ORAL
     Route: 048
     Dates: start: 20060301
  2. BLOPRESS (CANDESARTAN CILEXETIL) [Concomitant]
  3. BASEN (VOGLIBOSE) [Concomitant]
  4. LANTUS [Concomitant]
  5. NOVORAPID (INSULIN ASPART) [Concomitant]

REACTIONS (4)
  - BRONCHITIS [None]
  - CARDIAC FAILURE [None]
  - RESPIRATORY FAILURE [None]
  - VASODILATATION [None]
